FAERS Safety Report 10465516 (Version 2)
Quarter: 2014Q4

REPORT INFORMATION
  Report Type: Report from Study
  Country: US (occurrence: US)
  Receive Date: 20140919
  Receipt Date: 20141217
  Transmission Date: 20150528
  Serious: Yes (Hospitalization)
  Sender: FDA-Public Use
  Company Number: US-ACTELION-A-NJ2014-105242

PATIENT
  Age: 83 Year
  Sex: Female

DRUGS (10)
  1. MEGACE [Concomitant]
     Active Substance: MEGESTROL ACETATE
  2. VITAMIN D3 [Concomitant]
     Active Substance: CHOLECALCIFEROL
  3. METOPROLOL [Concomitant]
     Active Substance: METOPROLOL
  4. BIOTIN [Concomitant]
     Active Substance: BIOTIN
  5. FUROSEMIDE. [Concomitant]
     Active Substance: FUROSEMIDE
  6. FISH OIL [Concomitant]
     Active Substance: FISH OIL
  7. HYDROCODONE BITARTRATE AND ACETAMINOPHEN [Concomitant]
     Active Substance: ACETAMINOPHEN\HYDROCODONE BITARTRATE
  8. MULTIVITAMIN [Concomitant]
     Active Substance: VITAMINS
  9. MECHLORETHAMINE [Suspect]
     Active Substance: MECHLORETHAMINE
     Indication: MYCOSIS FUNGOIDES
     Dosage: UNK, QD
     Route: 061
     Dates: start: 201407
  10. FENOFIBRATE. [Concomitant]
     Active Substance: FENOFIBRATE

REACTIONS (3)
  - Ulcerative keratitis [Recovering/Resolving]
  - Application site pain [Recovering/Resolving]
  - Dehydration [Recovering/Resolving]
